FAERS Safety Report 23089083 (Version 2)
Quarter: 2023Q4

REPORT INFORMATION
  Report Type: Report from Study
  Country: CA (occurrence: CA)
  Receive Date: 20231020
  Receipt Date: 20231109
  Transmission Date: 20240109
  Serious: Yes (Life-Threatening)
  Sender: FDA-Public Use
  Company Number: CA-002147023-NVSC2023CA109909

PATIENT
  Sex: Male

DRUGS (3)
  1. LEQVIO [Suspect]
     Active Substance: INCLISIRAN SODIUM
     Indication: Arteriosclerosis
     Dosage: UNK
     Route: 058
     Dates: start: 20230808, end: 20231018
  2. PRAVASTATIN SODIUM [Suspect]
     Active Substance: PRAVASTATIN SODIUM
     Indication: Arteriosclerosis
     Dosage: 10 MG, QD
     Route: 058
     Dates: start: 202304
  3. EZETIMIBE [Suspect]
     Active Substance: EZETIMIBE
     Indication: Arteriosclerosis
     Dosage: 10 MG, QD
     Route: 058

REACTIONS (6)
  - Feeling abnormal [Unknown]
  - Low density lipoprotein increased [Unknown]
  - Malaise [Unknown]
  - Dyspnoea [Unknown]
  - Drug intolerance [Unknown]
  - Drug ineffective [Unknown]
